FAERS Safety Report 26117275 (Version 1)
Quarter: 2025Q4

REPORT INFORMATION
  Report Type: Spontaneous
  Country: CA (occurrence: CA)
  Receive Date: 20251203
  Receipt Date: 20251203
  Transmission Date: 20260117
  Serious: Yes (Congenital Anomaly, Other)
  Sender: TEVA
  Company Number: CA-TEVA-VS-3397718

PATIENT
  Sex: Female

DRUGS (10)
  1. BUPROPION [Suspect]
     Active Substance: BUPROPION
     Indication: Product used for unknown indication
     Route: 065
  2. TIOTROPIUM BROMIDE [Suspect]
     Active Substance: TIOTROPIUM BROMIDE
     Indication: Asthma
     Dosage: DOSE FORM: NOT SPECIFIED
     Route: 065
  3. ALVESCO [Suspect]
     Active Substance: CICLESONIDE
     Indication: Asthma
     Dosage: DOSE FORM:  AEROSOL, METERED DOSE, ROUTE OF ADMINISTRATION: INHALATION
     Route: 065
  4. NASONEX [Suspect]
     Active Substance: MOMETASONE FUROATE
     Indication: Product used for unknown indication
     Dosage: DOSE FORM: SPRAY, METERED DOSE
     Route: 048
  5. NUCALA [Suspect]
     Active Substance: MEPOLIZUMAB
     Indication: Asthma
     Route: 065
  6. NUCALA [Suspect]
     Active Substance: MEPOLIZUMAB
     Indication: Asthma
     Route: 042
  7. CICLESONIDE [Suspect]
     Active Substance: CICLESONIDE
     Indication: Asthma
     Dosage: DOSE FORM: NOT SPECIFIED
     Route: 065
  8. BUDESONIDE\FORMOTEROL [Suspect]
     Active Substance: BUDESONIDE\FORMOTEROL
     Indication: Asthma
     Dosage: DOSE FORM: NOT SPECIFIED, ROUTE OF ADMINISTRATION: INHALATION
     Route: 065
  9. BUDESONIDE\FORMOTEROL [Suspect]
     Active Substance: BUDESONIDE\FORMOTEROL
     Indication: Asthma
     Dosage: DOSE FORM: NOT SPECIFIED, ROUTE OF ADMINISTRATION: INHALATION
     Route: 065
  10. SPIRIVA [Suspect]
     Active Substance: TIOTROPIUM BROMIDE MONOHYDRATE
     Indication: Asthma
     Dosage: DOSE FORM: NOT SPECIFIED
     Route: 065

REACTIONS (8)
  - Asthma exercise induced [Unknown]
  - Sleep apnoea syndrome [Unknown]
  - Cholelithiasis [Unknown]
  - Obstructive sleep apnoea syndrome [Unknown]
  - Hypertension [Unknown]
  - Factor V Leiden mutation [Unknown]
  - Gestational diabetes [Unknown]
  - Rhinitis [Unknown]
